FAERS Safety Report 10045196 (Version 1)
Quarter: 2014Q1

REPORT INFORMATION
  Report Type: Spontaneous
  Country: US (occurrence: None)
  Receive Date: 20140306
  Receipt Date: 20140306
  Transmission Date: 20141002
  Serious: Yes (Death, Other)
  Sender: FDA-Public Use
  Company Number: 163-21880-12121379

PATIENT
  Age: 75 Year
  Sex: Male
  Weight: 96.5 kg

DRUGS (39)
  1. REVLIMID (LENALIDOMIDE) (CAPSULES) [Suspect]
     Indication: PLASMA CELL MYELOMA
     Route: 048
     Dates: start: 20120816
  2. DEXAMETHASONE (DEXAMETHASONE) [Suspect]
     Indication: PLASMA CELL MYELOMA
     Route: 048
     Dates: start: 20120816
  3. ELOTUZUMAB [Suspect]
     Indication: PLASMA CELL MYELOMA
     Route: 042
     Dates: start: 20120817
  4. ATENOLOL (ATENOLOL) [Concomitant]
  5. ASPIRIN (ACETYLSALICYLIC ACID) [Concomitant]
  6. WARFARIN (WARFARIN) [Concomitant]
  7. CENTRUM SILVER (CENTRUM SILVER) [Concomitant]
  8. ROSUVASTATIN (ROSUVASTATIN) [Concomitant]
  9. OMEPRAZOLE (OMEPRAZOLE) [Concomitant]
  10. HYDRALAZINE (HYDRALAZINE) [Concomitant]
  11. ISOSORBIDE MONONITRATE (ISOSORBIDE MONONITRATE) [Concomitant]
  12. OCUVITE (OCUVITE) [Concomitant]
  13. AQUAPHOR (AQUAPHOR HEALING OINTMENT) [Concomitant]
  14. ALBUTEROL SULFATE (SALBUTAMOL SULFATE) [Concomitant]
  15. AUGMENTIN [Concomitant]
  16. MUCINEX (GUAIFENESIN) [Concomitant]
  17. ATROVENT (IPRATROPIUM BROMIDE) [Concomitant]
  18. ZITHROMAX (AZITHROMYCIN) [Concomitant]
  19. TESSALON PERLES (BENZONATATE) [Concomitant]
  20. BUDESONIDE (BUDESONIDE) [Concomitant]
  21. SODIUM CHLORIDE (SODIUM CHLORIDE) [Concomitant]
  22. ROBITUSSIN AC (ROBITUSSIN A-C/OLD FORM/) [Concomitant]
  23. CEFTRIAXONE (CEFTRIAXONE) [Concomitant]
  24. LASIX (FUROSEMIDE) [Concomitant]
  25. KLOR (POTASSIUM) [Concomitant]
  26. MOXIFLOXACIN (MOXIFLOXACIN) [Concomitant]
  27. SOLUMEDROL (METHYLPREDNISOLONE SODIUM SUCCINATE) [Concomitant]
  28. MAGNESIUM OXIDE (MAGNESIUM OXIDE) [Concomitant]
  29. POTASSIUM PHOSPHATE (NEUTRA-PHOS-K) [Concomitant]
  30. PACKED RED BLOOD CELLS (RED BLOOD CELLS, CONCENTRATED) [Concomitant]
  31. PREDNISONE (PREDNISONE) [Concomitant]
  32. ACYCLOVIR (ACICLOVIR) [Concomitant]
  33. PLATELETS (PLATELETS) [Concomitant]
  34. CARVEDILOL (CARVEDILOL) [Concomitant]
  35. LISINOPRIL (LISINOPRIL) [Concomitant]
  36. LIPITOR (ATORVASTATIN) [Concomitant]
  37. POTASSIUM CHLORIDE (POTASSIUM CHLORIDE) [Concomitant]
  38. MAGNESIUM CHLORIDE (MAGNESIUM CHLORIDE ANHYDROUS) [Concomitant]
  39. TYLENOL (PARACETAMOL) [Concomitant]

REACTIONS (1)
  - Basal cell carcinoma [None]
